FAERS Safety Report 13014458 (Version 1)
Quarter: 2020Q3

REPORT INFORMATION
  Report Type: Spontaneous
  Country: GB (occurrence: GB)
  Receive Date: 20161209
  Receipt Date: 20161209
  Transmission Date: 20201105
  Serious: Yes (Other)
  Sender: FDA-Public Use
  Company Number: GB-MYLANLABS-2016M1054329

PATIENT

DRUGS (32)
  1. DESFLURANE. [Suspect]
     Active Substance: DESFLURANE
     Indication: ANAESTHESIA PROCEDURE
     Dosage: MAINTENANCE
     Route: 055
     Dates: start: 20160817, end: 20160817
  2. SERETIDE [Concomitant]
     Active Substance: FLUTICASONE PROPIONATE\SALMETEROL XINAFOATE
     Indication: PRODUCT USED FOR UNKNOWN INDICATION
     Route: 065
  3. ONDANSETRON [Suspect]
     Active Substance: ONDANSETRON
     Indication: PRODUCT USED FOR UNKNOWN INDICATION
     Dosage: UNK
     Route: 065
     Dates: start: 20160702
  4. ONDANSETRON [Suspect]
     Active Substance: ONDANSETRON
     Dosage: UNK
     Route: 065
     Dates: start: 20150528
  5. DEXAMETHASONE. [Suspect]
     Active Substance: DEXAMETHASONE
     Dosage: UNK
     Route: 065
     Dates: start: 20160702
  6. MORPHINE [Suspect]
     Active Substance: MORPHINE
     Indication: PRODUCT USED FOR UNKNOWN INDICATION
     Dosage: AT 12:00 H
     Route: 065
     Dates: start: 20160817, end: 20160817
  7. PROPOFOL. [Suspect]
     Active Substance: PROPOFOL
     Indication: ANAESTHESIA PROCEDURE
     Dosage: UNK
     Route: 065
     Dates: start: 20150528
  8. PROPOFOL. [Suspect]
     Active Substance: PROPOFOL
     Dosage: UNK
     Route: 065
     Dates: start: 20160702
  9. FENTANYL. [Suspect]
     Active Substance: FENTANYL
     Dosage: PRE?INDUCTION
     Route: 065
     Dates: start: 20160817, end: 20160817
  10. ROCURONIUM [Suspect]
     Active Substance: ROCURONIUM BROMIDE
     Indication: ANAESTHESIA PROCEDURE
     Dosage: INDUCTION
     Route: 065
     Dates: start: 20160817, end: 20160817
  11. ATRACURIUM [Suspect]
     Active Substance: ATRACURIUM
     Indication: ANAESTHESIA PROCEDURE
     Route: 065
     Dates: start: 20150528
  12. PROPOFOL. [Suspect]
     Active Substance: PROPOFOL
     Dosage: PRE?INDUCTION
     Route: 065
     Dates: start: 20160817, end: 20160817
  13. FENTANYL. [Suspect]
     Active Substance: FENTANYL
     Indication: ANAESTHESIA PROCEDURE
     Dosage: UNK
     Route: 065
     Dates: start: 20150528
  14. SEVOFLURANE BAXTER [Suspect]
     Active Substance: SEVOFLURANE
     Dosage: UNK
     Route: 065
     Dates: start: 20150528
  15. EPHEDRINE. [Suspect]
     Active Substance: EPHEDRINE
     Indication: PRODUCT USED FOR UNKNOWN INDICATION
     Dosage: AT 12:00 H
     Route: 065
     Dates: start: 20160817, end: 20160817
  16. MIDAZOLAM HYDROCHLORIDE. [Suspect]
     Active Substance: MIDAZOLAM HYDROCHLORIDE
     Dosage: UNK
     Route: 065
     Dates: start: 20150528
  17. REMIFENTANIL [Suspect]
     Active Substance: REMIFENTANIL
     Indication: PRODUCT USED FOR UNKNOWN INDICATION
     Dosage: STRENGTH: 2MG/40ML, MULTIPLE DOSES THROUGHOUT SURGERY
     Route: 065
     Dates: start: 20160817, end: 20160817
  18. ONDANSETRON [Suspect]
     Active Substance: ONDANSETRON
     Dosage: AT 12:00 H
     Route: 065
     Dates: start: 20160817, end: 20160817
  19. SEVOFLURANE BAXTER [Suspect]
     Active Substance: SEVOFLURANE
     Indication: ANAESTHESIA PROCEDURE
     Dosage: MAINTENANCE
     Dates: start: 20160817, end: 20160817
  20. MORPHINE [Suspect]
     Active Substance: MORPHINE
     Dosage: UNK
     Route: 065
     Dates: start: 20150528
  21. TIOTROPIUM [Concomitant]
     Active Substance: TIOTROPIUM
     Indication: PRODUCT USED FOR UNKNOWN INDICATION
     Route: 065
  22. SALBUTAMOL [Concomitant]
     Active Substance: ALBUTEROL
     Indication: PRODUCT USED FOR UNKNOWN INDICATION
     Route: 065
  23. SEVOFLURANE BAXTER [Suspect]
     Active Substance: SEVOFLURANE
     Dosage: UNK
     Route: 065
     Dates: start: 20160702
  24. DEXAMETHASONE. [Suspect]
     Active Substance: DEXAMETHASONE
     Dosage: UNK
     Route: 065
     Dates: start: 20150528
  25. DICLOFENAC [Suspect]
     Active Substance: DICLOFENAC
     Indication: PRODUCT USED FOR UNKNOWN INDICATION
     Dosage: AT 10:00 H
     Route: 065
     Dates: start: 20160817, end: 20160817
  26. MIDAZOLAM HYDROCHLORIDE. [Suspect]
     Active Substance: MIDAZOLAM HYDROCHLORIDE
     Indication: ANAESTHESIA PROCEDURE
     Route: 065
     Dates: start: 20160702
  27. FENTANYL. [Suspect]
     Active Substance: FENTANYL
     Dosage: UNK
     Route: 065
     Dates: start: 20160702
  28. DEXAMETHASONE. [Suspect]
     Active Substance: DEXAMETHASONE
     Indication: PRODUCT USED FOR UNKNOWN INDICATION
     Dosage: AT 09:15 H
     Route: 065
     Dates: start: 20160817, end: 20160817
  29. PARACETAMOL [Suspect]
     Active Substance: ACETAMINOPHEN
     Dosage: UNK
     Route: 065
     Dates: start: 20150528
  30. PARACETAMOL [Suspect]
     Active Substance: ACETAMINOPHEN
     Indication: PRODUCT USED FOR UNKNOWN INDICATION
     Dosage: UNK
     Route: 065
     Dates: start: 20160702
  31. PARACETAMOL [Suspect]
     Active Substance: ACETAMINOPHEN
     Dosage: AT 09:45 H
     Route: 065
     Dates: start: 20160817, end: 20160817
  32. PROPOFOL. [Suspect]
     Active Substance: PROPOFOL
     Dosage: INDUCTION
     Route: 065
     Dates: start: 20160817, end: 20160817

REACTIONS (1)
  - Hyperkalaemia [Recovered/Resolved]

NARRATIVE: CASE EVENT DATE: 20160817
